FAERS Safety Report 25683842 (Version 1)
Quarter: 2025Q3

REPORT INFORMATION
  Report Type: Spontaneous
  Country: EU (occurrence: EU)
  Receive Date: 20250814
  Receipt Date: 20250814
  Transmission Date: 20251021
  Serious: Yes (Hospitalization)
  Sender: BEIGENE
  Company Number: None

PATIENT
  Age: 77 Year
  Weight: 96 kg

DRUGS (4)
  1. BRUKINSA [Suspect]
     Active Substance: ZANUBRUTINIB
     Indication: Chronic lymphocytic leukaemia
  2. Enalapril/Hidroclorotiazida Vir [Concomitant]
  3. Clovate [Concomitant]
  4. SIMVASTATIN [Concomitant]
     Active Substance: SIMVASTATIN

REACTIONS (8)
  - Loss of consciousness [Recovering/Resolving]
  - Amnesia [Recovering/Resolving]
  - Epilepsy [Unknown]
  - Fall [Unknown]
  - Acute kidney injury [Recovering/Resolving]
  - Tremor [Recovering/Resolving]
  - Staring [Unknown]
  - Depressed level of consciousness [Unknown]
